FAERS Safety Report 6645331-X (Version None)
Quarter: 2010Q1

REPORT INFORMATION
  Report Type: 
  Country: None (occurrence: None)
  Receive Date: 20100322
  Receipt Date: 20100311
  Transmission Date: 20100710
  Serious: Yes (Death)
  Sender: FDA-Public Use
  Company Number: TW-BAXTER-2010BH007067

PATIENT

DRUGS (6)
  1. DIANEAL [Suspect]
     Indication: PERITONEAL DIALYSIS
     Route: 033
     Dates: start: 20100201
  2. DIANEAL [Suspect]
     Route: 033
     Dates: start: 20100201
  3. DIANEAL [Suspect]
     Indication: PERITONEAL DIALYSIS
     Route: 033
     Dates: start: 20100201
  4. DIANEAL [Suspect]
     Route: 033
     Dates: start: 20100201
  5. DIANEAL [Suspect]
     Indication: PERITONEAL DIALYSIS
     Route: 033
     Dates: start: 20100201
  6. DIANEAL [Suspect]
     Route: 033
     Dates: start: 20100201

REACTIONS (2)
  - PNEUMONIA [None]
  - SEPSIS [None]
